FAERS Safety Report 21365989 (Version 3)
Quarter: 2024Q2

REPORT INFORMATION
  Report Type: Spontaneous
  Country: ES (occurrence: ES)
  Receive Date: 20220922
  Receipt Date: 20240613
  Transmission Date: 20240716
  Serious: Yes (Death, Other)
  Sender: FDA-Public Use
  Company Number: None

PATIENT
  Age: 39 Year
  Sex: Male

DRUGS (8)
  1. ACETAMINOPHEN [Suspect]
     Active Substance: ACETAMINOPHEN
     Indication: Pyrexia
     Dosage: DOSE DESCRIPTION : UNK,PARACETAMOL (12A)
     Route: 065
     Dates: start: 20220818, end: 20220819
  2. MEROPENEM [Suspect]
     Active Substance: MEROPENEM
     Indication: Pneumonia
     Dosage: DOSAGE TEXT: EVERY 8H
     Route: 065
     Dates: start: 20220818
  3. TECLISTAMAB [Suspect]
     Active Substance: TECLISTAMAB
     Indication: Plasma cell myeloma refractory
     Dosage: DOSAGE TEXT: TECLISTAMAB (30933A)
     Route: 065
     Dates: start: 20220624, end: 20220812
  4. TECLISTAMAB [Suspect]
     Active Substance: TECLISTAMAB
     Indication: Plasma cell myeloma refractory
     Route: 065
     Dates: start: 20220818, end: 20220818
  5. DEXAMETHASONE [Suspect]
     Active Substance: DEXAMETHASONE
     Indication: COVID-19
     Dosage: DOSAGE TEXT: 6MG EVERY 24H, 4 MG INJECTION 1 ML 1 VIAL
     Route: 065
     Dates: start: 20220818, end: 20220819
  6. LINEZOLID [Suspect]
     Active Substance: LINEZOLID
     Indication: Pneumonia
     Dosage: 600MG EACH 12, LINEZOLID (1279A)
     Route: 042
     Dates: start: 20220818, end: 20220819
  7. ENOXAPARIN SODIUM [Suspect]
     Active Substance: ENOXAPARIN SODIUM
     Indication: Prophylaxis
     Dosage: DOSAGE TEXT: 1 EVERY 24H, 40 MG (4,000 IU) INJECTION 0.4 ML 1 ML 1 VIAL
     Route: 065
     Dates: start: 20220818
  8. TOCILIZUMAB [Suspect]
     Active Substance: TOCILIZUMAB
     Indication: COVID-19
     Dosage: TIME INTERVAL: TOTAL: DOSAGE TEXT: 600MG SINGLE DOSE, TOCILIZUMAB (8289A)
     Route: 065
     Dates: start: 20220818, end: 20220818

REACTIONS (2)
  - Hepatitis fulminant [Fatal]
  - Hepatitis acute [Fatal]

NARRATIVE: CASE EVENT DATE: 20220819
